FAERS Safety Report 5303145-7 (Version None)
Quarter: 2007Q2

REPORT INFORMATION
  Report Type: 
  Country: None (occurrence: None)
  Receive Date: 20070420
  Receipt Date: 20070406
  Transmission Date: 20071010
  Serious: Yes (Disabling, Other)
  Sender: FDA-Public Use
  Company Number: PHEH2007US04631

PATIENT
  Age: 56 Year
  Sex: Female

DRUGS (2)
  1. GLEEVEC [Suspect]
     Indication: CERVIX CARCINOMA
     Dosage: 400 MG, QD
     Route: 048
     Dates: start: 20070201, end: 20070402
  2. ANESTHETICS, GENERAL [Concomitant]
     Indication: URETERAL STENT INSERTION
     Dates: start: 20070301

REACTIONS (11)
  - FEAR [None]
  - GENERALISED OEDEMA [None]
  - HYPOTONIA [None]
  - MOVEMENT DISORDER [None]
  - MUSCULOSKELETAL STIFFNESS [None]
  - MYOPATHY [None]
  - OEDEMA PERIPHERAL [None]
  - PULMONARY OEDEMA [None]
  - PYELONEPHRITIS [None]
  - URETHRAL STENT INSERTION [None]
  - WEIGHT INCREASED [None]
